FAERS Safety Report 12697734 (Version 2)
Quarter: 2016Q3

REPORT INFORMATION
  Report Type: Report from Study
  Country: BR (occurrence: BR)
  Receive Date: 20160830
  Receipt Date: 20160906
  Transmission Date: 20161109
  Serious: Yes (Other)
  Sender: FDA-Public Use
  Company Number: PHHY2016BR118238

PATIENT
  Sex: Female
  Weight: 86 kg

DRUGS (19)
  1. ATENOLOL. [Concomitant]
     Active Substance: ATENOLOL
     Indication: HYPERTENSION
     Dosage: 25 MG, TID
     Route: 048
  2. ATORVASTATINA [Concomitant]
     Active Substance: ATORVASTATIN
     Indication: BLOOD CHOLESTEROL ABNORMAL
     Dosage: 40 MG, BID
     Route: 048
  3. ZETIA [Concomitant]
     Active Substance: EZETIMIBE
     Indication: BLOOD CHOLESTEROL ABNORMAL
     Dosage: 1 DF(30 MG), QD
     Route: 048
  4. RIVOTRIL [Concomitant]
     Active Substance: CLONAZEPAM
     Indication: SLEEP DISORDER
     Dosage: TWICE A DAY
     Route: 048
  5. HIDRION [Concomitant]
     Indication: DIURETIC THERAPY
     Dosage: 1 DF, QD
     Route: 048
  6. ATENSINA [Concomitant]
     Active Substance: CLONIDINE
     Indication: ARRHYTHMIA
     Dosage: 100 MG, TID
     Route: 048
  7. CLOPIDOGREL [Concomitant]
     Active Substance: CLOPIDOGREL BISULFATE
     Indication: CEREBROVASCULAR ACCIDENT
     Dosage: 300 MG, QD (FOR 5 DAYS A WEEK)
     Route: 048
  8. ACLASTA [Suspect]
     Active Substance: ZOLEDRONIC ACID
     Indication: OSTEOPOROSIS
     Dosage: 1 DF, Q12MO
     Route: 030
  9. LEXOTAN [Concomitant]
     Active Substance: BROMAZEPAM
     Indication: PRODUCT USED FOR UNKNOWN INDICATION
     Route: 065
  10. ACLASTA [Suspect]
     Active Substance: ZOLEDRONIC ACID
     Dosage: UNK
     Route: 065
     Dates: start: 20140702
  11. LOSARTAN. [Concomitant]
     Active Substance: LOSARTAN
     Indication: CARDIAC DISORDER
     Dosage: 1 DF, QD
     Route: 048
  12. LEVOID [Concomitant]
     Active Substance: LEVOTHYROXINE
     Indication: THYROID DISORDER
     Dosage: 1 DF, QD
     Route: 048
  13. ATENSINE [Concomitant]
     Active Substance: DIAZEPAM
     Indication: PRODUCT USED FOR UNKNOWN INDICATION
     Dosage: UNK
     Route: 065
  14. ACLASTA [Suspect]
     Active Substance: ZOLEDRONIC ACID
     Dosage: 5 MG, Q12MO
     Route: 042
     Dates: start: 20130805
  15. ACLASTA [Suspect]
     Active Substance: ZOLEDRONIC ACID
     Dosage: UNK
     Route: 065
     Dates: start: 20150508
  16. OMEPRAZOLE. [Concomitant]
     Active Substance: OMEPRAZOLE
     Indication: GASTROINTESTINAL DISORDER
     Dosage: 1 DF, QD
     Route: 048
  17. DONAREN [Concomitant]
     Active Substance: TRAZODONE HYDROCHLORIDE
     Indication: SLEEP DISORDER
     Dosage: 50 MG, UNK
     Route: 048
  18. ROXFLAN [Concomitant]
     Active Substance: AMLODIPINE BESYLATE
     Indication: CARDIAC DISORDER
     Dosage: 1 DF, QD
     Route: 048
  19. ATORVASTATIN [Concomitant]
     Active Substance: ATORVASTATIN
     Indication: PRODUCT USED FOR UNKNOWN INDICATION
     Dosage: UNK
     Route: 065

REACTIONS (6)
  - Incorrect route of drug administration [Unknown]
  - Fluid intake reduced [Unknown]
  - Diabetes mellitus [Recovered/Resolved]
  - Body height decreased [Not Recovered/Not Resolved]
  - Inappropriate schedule of drug administration [Unknown]
  - Dysuria [Unknown]

NARRATIVE: CASE EVENT DATE: 2016
